FAERS Safety Report 18687376 (Version 5)
Quarter: 2021Q4

REPORT INFORMATION
  Report Type: Report from Study
  Country: US (occurrence: US)
  Receive Date: 20201231
  Receipt Date: 20211028
  Transmission Date: 20220303
  Serious: Yes (Other)
  Sender: FDA-Public Use
  Company Number: US-TAKEDA-2020TUS060586

PATIENT
  Sex: Female
  Weight: 81 kg

DRUGS (13)
  1. CUVITRU [Suspect]
     Active Substance: HUMAN IMMUNOGLOBULIN G
     Indication: Chronic inflammatory demyelinating polyradiculoneuropathy
     Dosage: 16 GRAM, 1/WEEK
     Route: 058
     Dates: start: 20201202
  2. CUVITRU [Suspect]
     Active Substance: HUMAN IMMUNOGLOBULIN G
     Dosage: 200 MILLIGRAM/KILOGRAM, 1/WEEK
     Route: 058
     Dates: start: 20201202
  3. ACETAMINOPHEN [Concomitant]
     Active Substance: ACETAMINOPHEN
  4. DIPHENHYDRAMINE [Concomitant]
     Active Substance: DIPHENHYDRAMINE
  5. EPINEPHRINE [Concomitant]
     Active Substance: EPINEPHRINE
  6. NORCO [Concomitant]
     Active Substance: ACETAMINOPHEN\HYDROCODONE BITARTRATE
  7. LYRICA [Concomitant]
     Active Substance: PREGABALIN
  8. SYNTHROID [Concomitant]
     Active Substance: LEVOTHYROXINE SODIUM
  9. ESTRADIOL [Concomitant]
     Active Substance: ESTRADIOL
  10. AMLODIPINE BESYLATE [Concomitant]
     Active Substance: AMLODIPINE BESYLATE
  11. IBUPROFEN [Concomitant]
     Active Substance: IBUPROFEN
  12. CLARITHROMYCIN [Concomitant]
     Active Substance: CLARITHROMYCIN
  13. LIDOCAINE [Concomitant]
     Active Substance: LIDOCAINE

REACTIONS (7)
  - Cellulitis [Unknown]
  - Blood pressure abnormal [Unknown]
  - Infusion related reaction [Unknown]
  - Blood pressure increased [Unknown]
  - Headache [Unknown]
  - Nausea [Unknown]
  - Inappropriate schedule of product administration [Unknown]
